FAERS Safety Report 24653581 (Version 1)
Quarter: 2024Q4

REPORT INFORMATION
  Report Type: Spontaneous
  Country: US (occurrence: None)
  Receive Date: 20241121
  Receipt Date: 20241121
  Transmission Date: 20250115
  Serious: No
  Sender: Public
  Company Number: None

PATIENT
  Age: 48 Year
  Sex: Female
  Weight: 51.75 kg

DRUGS (9)
  1. MONISTAT 3 COMBINATION PACK [Suspect]
     Active Substance: MICONAZOLE NITRATE
     Indication: Fungal infection
     Dates: start: 20241119, end: 20241119
  2. PROGESTERONE [Concomitant]
     Active Substance: PROGESTERONE
  3. TESTOSTERONE [Concomitant]
     Active Substance: TESTOSTERONE
  4. IRON [Concomitant]
     Active Substance: IRON
  5. IODINE [Concomitant]
     Active Substance: IODINE
  6. OMEGA-3 ACIDS [Concomitant]
     Active Substance: OMEGA-3 FATTY ACIDS
  7. dynamic mushrooms [Concomitant]
  8. dynamic brain [Concomitant]
  9. melatonin blend [Concomitant]

REACTIONS (4)
  - Bladder discomfort [None]
  - Pain [None]
  - Sleep disorder [None]
  - Pelvic pain [None]

NARRATIVE: CASE EVENT DATE: 20241119
